FAERS Safety Report 6356217-2 (Version None)
Quarter: 2009Q3

REPORT INFORMATION
  Report Type: 
  Country: None (occurrence: None)
  Receive Date: 20090911
  Receipt Date: 20090911
  Transmission Date: 20100115
  Serious: Yes (Other)
  Sender: FDA-Public Use
  Company Number: None

PATIENT
  Age: 54 Year
  Sex: Female
  Weight: 56.246 kg

DRUGS (3)
  1. ESTRADIOL [Suspect]
     Indication: HOT FLUSH
     Dosage: 1 DAILY PO
     Route: 048
     Dates: start: 20090813, end: 20090814
  2. ESTRADIOL [Suspect]
     Indication: INSOMNIA
     Dosage: 1 DAILY PO
     Route: 048
     Dates: start: 20090813, end: 20090814
  3. ESTRADIOL [Suspect]
     Indication: MENOPAUSE
     Dosage: 1 DAILY PO
     Route: 048
     Dates: start: 20090813, end: 20090814

REACTIONS (7)
  - ABDOMINAL PAIN UPPER [None]
  - AMNESIA [None]
  - ANXIETY [None]
  - DIARRHOEA [None]
  - DIZZINESS [None]
  - VERTIGO [None]
  - VOMITING [None]
